FAERS Safety Report 24798569 (Version 1)
Quarter: 2025Q1

REPORT INFORMATION
  Report Type: Spontaneous
  Country: US (occurrence: US)
  Receive Date: 20250102
  Receipt Date: 20250102
  Transmission Date: 20250408
  Serious: Yes (Hospitalization, Disabling, Other)
  Sender: AMGEN
  Company Number: US-AMGEN-USASP2024252593

PATIENT
  Age: 51 Year
  Sex: Female

DRUGS (4)
  1. AIMOVIG [Suspect]
     Active Substance: ERENUMAB-AOOE
     Indication: Migraine prophylaxis
     Dosage: 140 MILLIGRAM, QMO
     Route: 058
     Dates: start: 2020
  2. IMITREX [Concomitant]
     Active Substance: SUMATRIPTAN SUCCINATE
     Indication: Migraine
  3. CAFFEINE [Concomitant]
     Active Substance: CAFFEINE
     Indication: Headache
     Route: 048
  4. ACETAMINOPHEN [Concomitant]
     Active Substance: ACETAMINOPHEN
     Indication: Headache
     Route: 048

REACTIONS (16)
  - Myocardial infarction [Unknown]
  - Cerebrovascular accident [Unknown]
  - Disability [Unknown]
  - Intervertebral disc protrusion [Unknown]
  - Accident [Unknown]
  - Neck injury [Unknown]
  - Device difficult to use [Unknown]
  - Hypoaesthesia [Unknown]
  - Dysphemia [Unknown]
  - Muscle spasms [Unknown]
  - Wrong technique in device usage process [Unknown]
  - Migraine [Unknown]
  - Muscular weakness [Unknown]
  - Concussion [Unknown]
  - Post-traumatic neck syndrome [Unknown]
  - Job dissatisfaction [Unknown]

NARRATIVE: CASE EVENT DATE: 20210601
